FAERS Safety Report 25126446 (Version 1)
Quarter: 2025Q1

REPORT INFORMATION
  Report Type: Spontaneous
  Country: US (occurrence: US)
  Receive Date: 20250327
  Receipt Date: 20250327
  Transmission Date: 20250408
  Serious: Yes (Life-Threatening, Hospitalization)
  Sender: ENDO
  Company Number: US-ENDO USA, INC.-2025-000889

PATIENT
  Age: 27 Year
  Sex: Female

DRUGS (1)
  1. ADRENALIN [Suspect]
     Active Substance: EPINEPHRINE
     Indication: Anaphylactic reaction
     Route: 042

REACTIONS (4)
  - Arteriospasm coronary [Recovered/Resolved]
  - Cardiogenic shock [Recovered/Resolved]
  - Incorrect route of product administration [Recovered/Resolved]
  - Accidental overdose [Recovered/Resolved]
